FAERS Safety Report 9075036 (Version 1)
Quarter: 2013Q1

REPORT INFORMATION
  Report Type: Spontaneous
  Country: CA (occurrence: CA)
  Receive Date: 20130129
  Receipt Date: 20130129
  Transmission Date: 20140127
  Serious: Yes (Hospitalization)
  Sender: FDA-Public Use
  Company Number: CA-AMGEN-CANSP2013004942

PATIENT
  Age: 93 Year
  Sex: Female

DRUGS (1)
  1. PROLIA [Suspect]
     Indication: OSTEOPOROSIS
     Dosage: UNK
     Dates: start: 20110823

REACTIONS (7)
  - Intestinal obstruction [Recovering/Resolving]
  - Myocardial infarction [Unknown]
  - Cardiac arrest [Unknown]
  - Lung disorder [Unknown]
  - Memory impairment [Unknown]
  - Fall [Unknown]
  - Local swelling [Unknown]
